FAERS Safety Report 23909479 (Version 1)
Quarter: 2024Q2

REPORT INFORMATION
  Report Type: Spontaneous
  Country: CN (occurrence: CN)
  Receive Date: 20240528
  Receipt Date: 20240528
  Transmission Date: 20240716
  Serious: Yes (Other)
  Sender: FDA-Public Use
  Company Number: CN-PFIZER INC-PV202400068064

PATIENT
  Age: 41 Year
  Sex: Male

DRUGS (4)
  1. VORICONAZOLE [Interacting]
     Active Substance: VORICONAZOLE
     Indication: Fungal infection
     Dosage: UNK
  2. GRANULOCYTE COLONY-STIMULATING FACTOR NOS [Interacting]
     Active Substance: GRANULOCYTE COLONY-STIMULATING FACTOR NOS
     Route: 058
  3. DEXAMETHASONE [Concomitant]
     Active Substance: DEXAMETHASONE
     Dosage: UNK
     Route: 042
  4. THROMBOPOIETIN [Concomitant]
     Active Substance: THROMBOPOIETIN
     Route: 058

REACTIONS (4)
  - Drug interaction [Recovered/Resolved]
  - Nonspecific reaction [Recovered/Resolved]
  - Granulocytopenia [Recovered/Resolved]
  - Full blood count abnormal [Recovered/Resolved]
